FAERS Safety Report 7866634-7 (Version None)
Quarter: 2011Q4

REPORT INFORMATION
  Report Type: 
  Country: None (occurrence: None)
  Receive Date: 20111028
  Receipt Date: 20110718
  Transmission Date: 20120403
  Serious: Yes (Hospitalization)
  Sender: FDA-Public Use
  Company Number: US-GLAXOSMITHKLINE-A0937082A

PATIENT
  Sex: Male

DRUGS (5)
  1. ADVAIR DISKUS 100/50 [Suspect]
     Indication: CHRONIC OBSTRUCTIVE PULMONARY DISEASE
     Dosage: 1PUFF TWICE PER DAY
     Route: 055
  2. FLUTICASON [Concomitant]
  3. VITAMIN TAB [Concomitant]
  4. LOPID [Concomitant]
  5. HYTRIN [Concomitant]

REACTIONS (2)
  - DYSPHONIA [None]
  - PNEUMONIA [None]
